FAERS Safety Report 24528661 (Version 1)
Quarter: 2024Q4

REPORT INFORMATION
  Report Type: Spontaneous
  Country: GB (occurrence: GB)
  Receive Date: 20241021
  Receipt Date: 20241021
  Transmission Date: 20250115
  Serious: Yes (Other)
  Sender: TEVA
  Company Number: GB-MHRA-TPP6541776C10852761YC1728910175168

PATIENT
  Age: 62 Year
  Sex: Female
  Weight: 75 kg

DRUGS (17)
  1. TRIMETHOPRIM [Suspect]
     Active Substance: TRIMETHOPRIM
     Indication: Ill-defined disorder
     Route: 065
     Dates: start: 20240829, end: 20240901
  2. AMITRIPTYLINE HYDROCHLORIDE [Concomitant]
     Active Substance: AMITRIPTYLINE HYDROCHLORIDE
     Indication: Ill-defined disorder
     Dosage: TAKE 1-2 AT NIGHT, TPP YC - PLEASE RECLASSIFY
     Dates: start: 20240425
  3. NITROFURANTOIN [Concomitant]
     Active Substance: NITROFURANTOIN
     Indication: Ill-defined disorder
     Dosage: NON PREGNANT WOMEN }16Y: F..., TPP YC - PLEASE RECLASSIFY
     Dates: start: 20240827, end: 20240830
  4. DOXYCYCLINE [Concomitant]
     Active Substance: DOXYCYCLINE
     Indication: Ill-defined disorder
     Dosage: SINUSITIS (ACUTE) IN ADULTS OR CHILDREN AGED 12..., TPP YC - PLEASE RECLASSIFY
     Dates: start: 20240806, end: 20240811
  5. BECLOMETHASONE\FORMOTEROL [Concomitant]
     Active Substance: BECLOMETHASONE\FORMOTEROL
     Indication: Ill-defined disorder
     Dosage: TWO PUFFS TWICE DAILY (ASTHMA ONLY BTS STEP 3), TPP YC - PLEASE RECLASSIFY
     Route: 055
     Dates: start: 20240402
  6. LANSOPRAZOLE [Concomitant]
     Active Substance: LANSOPRAZOLE
     Indication: Ill-defined disorder
     Dosage: ON EMPTY STOMACH, TPP YC - PLEASE RECLASSIFY
     Dates: start: 20240402
  7. EASYHALER [Concomitant]
     Indication: Ill-defined disorder
     Dosage: TIME INTERVAL: AS NECESSARY: TPP YC - PLEASE RECLASSIFY
     Route: 055
     Dates: start: 20240112
  8. CALCI D [Concomitant]
     Indication: Ill-defined disorder
     Dosage: TPP YC - PLEASE RECLASSIFY
     Dates: start: 20240402
  9. FEXOFENADINE [Concomitant]
     Active Substance: FEXOFENADINE HYDROCHLORIDE
     Indication: Ill-defined disorder
     Dosage: TAKE ONE DAILY, CAN INCREASE TO TWO A DAY AS PE..., TPP YC - PLEASE RECLASSIFY
     Dates: start: 20240402
  10. RAMIPRIL [Concomitant]
     Active Substance: RAMIPRIL
     Indication: Ill-defined disorder
     Dosage: TPP YC - PLEASE RECLASSIFY
     Dates: start: 20240402
  11. MOMETASONE [Concomitant]
     Active Substance: MOMETASONE
     Indication: Ill-defined disorder
     Dosage: TWO SPRAYS DAILY TO BOTH NOSTRILS, TPP YC - PLEASE RECLASSIFY
     Route: 045
     Dates: start: 20240726
  12. ESTRIOL [Concomitant]
     Active Substance: ESTRIOL
     Indication: Ill-defined disorder
     Dosage: APPLY ONCE DAILY AT NIGHT FOR 2 WEEKS THEN REDU..., TPP YC - PLEASE RECLASSIFY
     Dates: start: 20240402
  13. DOXAZOSIN [Concomitant]
     Active Substance: DOXAZOSIN\DOXAZOSIN MESYLATE
     Indication: Ill-defined disorder
     Dosage: TAKE 5 DAILY (10MG) - CAN SPLIT THE DOSE AM/PM, TPP YC - PLEASE RECLASSIFY
     Dates: start: 20240402
  14. MONTELUKAST [Concomitant]
     Active Substance: MONTELUKAST
     Indication: Ill-defined disorder
     Dosage: AT NIGHT, TPP YC - PLEASE RECLASSIFY
     Dates: start: 20240402
  15. SERTRALINE [Concomitant]
     Active Substance: SERTRALINE HYDROCHLORIDE
     Indication: Ill-defined disorder
     Dosage: TPP YC - PLEASE RECLASSIFY
     Dates: start: 20240402
  16. ATORVASTATIN [Concomitant]
     Active Substance: ATORVASTATIN
     Indication: Ill-defined disorder
     Dosage: AT NIGHT TIME, TPP YC - PLEASE RECLASSIFY
     Dates: start: 20240402
  17. POTASSIUM BICARBONATE\SODIUM ALGINATE [Concomitant]
     Active Substance: POTASSIUM BICARBONATE\SODIUM ALGINATE
     Indication: Ill-defined disorder
     Dosage: TPP YC - PLEASE RECLASSIFY
     Dates: start: 20240402

REACTIONS (1)
  - Lip swelling [Unknown]
